FAERS Safety Report 15215725 (Version 1)
Quarter: 2018Q3

REPORT INFORMATION
  Report Type: Report from Study
  Country: GB (occurrence: GB)
  Receive Date: 20180730
  Receipt Date: 20180730
  Transmission Date: 20181010
  Serious: Yes (Hospitalization, Disabling)
  Sender: FDA-Public Use
  Company Number: GB-TEVA-2018-GB-932191

PATIENT
  Age: 77 Year
  Sex: Male

DRUGS (19)
  1. OMEPRAZOLE. [Concomitant]
     Active Substance: OMEPRAZOLE
     Indication: PROPHYLAXIS AGAINST GASTROINTESTINAL ULCER
     Dosage: 20 MILLIGRAM DAILY; DOSAGE FORM: UNSPECIFIED
     Route: 048
     Dates: start: 2015
  2. BORTEZOMIB. [Suspect]
     Active Substance: BORTEZOMIB
     Indication: PLASMA CELL MYELOMA
     Dosage: DOSAGE FORM: LYOPHILIZED POWDER
     Route: 058
     Dates: start: 20170519, end: 20170619
  3. PLACEBO [Suspect]
     Active Substance: UNSPECIFIED INGREDIENT
     Indication: PLASMA CELL MYELOMA
     Route: 048
     Dates: start: 20170519, end: 20170622
  4. CLOPIDOGREL [Concomitant]
     Active Substance: CLOPIDOGREL BISULFATE
     Indication: ANTICOAGULANT THERAPY
     Dosage: 75 MILLIGRAM DAILY; DOSAGE FORM: UNSPECIFIED
     Route: 048
     Dates: start: 2015, end: 201708
  5. COCODAMOL [Concomitant]
     Active Substance: ACETAMINOPHEN\CODEINE PHOSPHATE
     Indication: ANALGESIC THERAPY
     Dosage: DOSAGE FORM: UNSPECIFIED, DOSE: 30/500 MG AS REQUIRED
     Route: 048
     Dates: start: 2015
  6. ALLOPURINOL. [Concomitant]
     Active Substance: ALLOPURINOL
     Indication: PROPHYLAXIS
     Dosage: 300 MILLIGRAM DAILY; DOSAGE FORM: UNSPECIFIED
     Route: 048
     Dates: start: 20170421
  7. TAMSULOSIN [Concomitant]
     Active Substance: TAMSULOSIN
     Indication: CHRONIC KIDNEY DISEASE
     Dosage: DOSAGE FORM: UNSPECIFIED
     Route: 048
     Dates: start: 2015
  8. DEXAMETHASONE. [Suspect]
     Active Substance: DEXAMETHASONE
     Indication: PLASMA CELL MYELOMA
     Dosage: DOSAGE FORM: UNSPECIFIED
     Route: 048
     Dates: start: 20170519, end: 20170620
  9. BISOPROLOL [Concomitant]
     Active Substance: BISOPROLOL
     Indication: PROPHYLAXIS
     Dosage: 5 MILLIGRAM DAILY; DOSAGE FORM: UNSPECIFIED
     Route: 048
     Dates: start: 2015, end: 201708
  10. ARANESP [Concomitant]
     Active Substance: DARBEPOETIN ALFA
     Indication: ANAEMIA
     Dosage: DOSAGE FORM: UNSPECIFIED
     Route: 058
     Dates: start: 20170419
  11. DOXAZOSIN [Concomitant]
     Active Substance: DOXAZOSIN\DOXAZOSIN MESYLATE
     Indication: HYPERTENSION
     Dosage: 2 MILLIGRAM DAILY; DOSAGE FORM: UNSPECIFIED
     Route: 048
     Dates: start: 2015
  12. FUROSEMIDE. [Concomitant]
     Active Substance: FUROSEMIDE
     Indication: HYPERTENSION
     Dosage: 20 MILLIGRAM DAILY; DOSAGE FORM: UNSPECIFIED
     Route: 048
     Dates: start: 201708
  13. FUROSEMIDE. [Concomitant]
     Active Substance: FUROSEMIDE
     Indication: HYPERTENSION
     Dosage: 40 MILLIGRAM DAILY; DOSAGE FORM: UNSPECIFIED
     Route: 048
     Dates: start: 2015, end: 201708
  14. ACICLOVIR [Concomitant]
     Active Substance: ACYCLOVIR
     Indication: PROPHYLAXIS
     Dosage: 800 MILLIGRAM DAILY; DOSAGE FORM: UNSPECIFIED
     Route: 048
     Dates: start: 20170516
  15. COTRIMOXAZOLE [Concomitant]
     Active Substance: SULFAMETHOXAZOLE\TRIMETHOPRIM
     Indication: PROPHYLAXIS
     Dosage: 480 MILLIGRAM DAILY; DOSAGE FORM: UNSPECIFIED
     Route: 048
     Dates: start: 20170519
  16. ATORVASTATIN [Concomitant]
     Active Substance: ATORVASTATIN
     Indication: PROPHYLAXIS
     Dosage: 10 MILLIGRAM DAILY; DOSAGE FORM: UNSPECIFIED
     Route: 048
     Dates: start: 2015, end: 201708
  17. ZOLEDRONIC ACID [Concomitant]
     Active Substance: ZOLEDRONIC ACID
     Indication: OSTEOARTHRITIS
     Dosage: DOSAGE FORM: UNSPECIFIED
     Route: 041
     Dates: start: 2015
  18. VENETOCLAX. [Suspect]
     Active Substance: VENETOCLAX
     Indication: PLASMA CELL MYELOMA
     Route: 048
     Dates: start: 20170519, end: 20170622
  19. CALCICHEW D3 [Concomitant]
     Active Substance: CALCIUM\CHOLECALCIFEROL
     Indication: VITAMIN SUPPLEMENTATION
     Dosage: 1.5 GRAM DAILY; DOSAGE FORM: UNSPECIFIED
     Route: 048
     Dates: start: 2015

REACTIONS (5)
  - Toxicity to various agents [Recovered/Resolved]
  - Mobility decreased [Recovered/Resolved]
  - Social problem [Recovered/Resolved]
  - Neuropathy peripheral [Recovered/Resolved]
  - Fall [Recovered/Resolved]

NARRATIVE: CASE EVENT DATE: 20170727
